FAERS Safety Report 5253700-8 (Version None)
Quarter: 2007Q1

REPORT INFORMATION
  Report Type: 
  Country: None (occurrence: None)
  Receive Date: 20070301
  Receipt Date: 20070226
  Transmission Date: 20070707
  Serious: Yes (Hospitalization)
  Sender: FDA-Public Use
  Company Number: DE-MERCK-0702DEU00094

PATIENT
  Age: 70 Year
  Sex: Female
  Weight: 73 kg

DRUGS (7)
  1. VYTORIN [Suspect]
     Indication: HYPERCHOLESTEROLAEMIA
     Route: 048
     Dates: start: 20070104, end: 20070104
  2. PHENPROCOUMON [Concomitant]
     Indication: FACTOR II MUTATION
     Route: 065
  3. ALLOPURINOL [Concomitant]
     Route: 065
  4. MIRTAZAPINE [Concomitant]
     Route: 065
  5. TORSEMIDE [Concomitant]
     Route: 065
  6. BUDESONIDE [Concomitant]
     Route: 065
  7. HYDROCHLOROTHIAZIDE AND IRBESARTAN [Concomitant]
     Route: 065

REACTIONS (1)
  - SUBILEUS [None]
